FAERS Safety Report 15403278 (Version 1)
Quarter: 2018Q3

REPORT INFORMATION
  Report Type: Spontaneous
  Country: JP (occurrence: JP)
  Receive Date: 20180919
  Receipt Date: 20180919
  Transmission Date: 20181010
  Serious: Yes (Other)
  Sender: FDA-Public Use
  Company Number: JP-BAYER-2018-175560

PATIENT
  Age: 55 Year
  Sex: Male

DRUGS (2)
  1. BAYASPIRIN 100 MG [Suspect]
     Active Substance: ASPIRIN
     Dosage: UNK, QD
     Dates: start: 20140901
  2. WARFARIN [Concomitant]
     Active Substance: WARFARIN
     Dosage: 100 MG, QD
     Route: 048
     Dates: start: 20140901

REACTIONS (2)
  - Gastric ulcer [Recovered/Resolved]
  - Epigastric discomfort [Recovered/Resolved]

NARRATIVE: CASE EVENT DATE: 201409
